FAERS Safety Report 10906682 (Version 1)
Quarter: 2015Q1

REPORT INFORMATION
  Report Type: Spontaneous
  Country: CH (occurrence: CH)
  Receive Date: 20150312
  Receipt Date: 20150312
  Transmission Date: 20150721
  Serious: Yes (Death)
  Sender: FDA-Public Use
  Company Number: CH-BIOGENIDEC-2015BI031280

PATIENT
  Age: 52 Year
  Sex: Female

DRUGS (7)
  1. FAMPYRA [Suspect]
     Active Substance: DALFAMPRIDINE
     Indication: GAIT DISTURBANCE
  2. RITALIN (METHYLPHENIDATE) - SUSPECT DRUG [Concomitant]
     Indication: FATIGUE
     Route: 048
  3. KLIOGEST (ESTRADIOL/NORETHISTERONE) [Concomitant]
  4. TYSABRI [Concomitant]
     Active Substance: NATALIZUMAB
     Indication: RELAPSING-REMITTING MULTIPLE SCLEROSIS
     Route: 042
     Dates: start: 200807, end: 201008
  5. ASPIRIN CARDIO (ACETYLSALICYLIC ACID) [Concomitant]
     Active Substance: ASPIRIN
  6. TYSABRI [Concomitant]
     Active Substance: NATALIZUMAB
     Indication: RELAPSING-REMITTING MULTIPLE SCLEROSIS
     Route: 042
     Dates: start: 201011, end: 20141209
  7. KEPPRA [Concomitant]
     Active Substance: LEVETIRACETAM
     Indication: EPILEPSY

REACTIONS (1)
  - Completed suicide [Fatal]

NARRATIVE: CASE EVENT DATE: 20150129
